FAERS Safety Report 15782690 (Version 1)
Quarter: 2019Q1

REPORT INFORMATION
  Report Type: Report from Study
  Country: JP (occurrence: JP)
  Receive Date: 20190102
  Receipt Date: 20190102
  Transmission Date: 20190417
  Serious: Yes (Hospitalization)
  Sender: FDA-Public Use
  Company Number: JP-ASTRAZENECA-2018SF71916

PATIENT
  Age: 58 Year
  Sex: Male
  Weight: 76 kg

DRUGS (17)
  1. AZILVA [Concomitant]
     Active Substance: AZILSARTAN KAMEDOXOMIL
     Indication: HYPERTENSION
     Dosage: NUMBER OF SEPARETE DOSAGES UNKNOWN
     Route: 048
  2. ROHYPNOL [Concomitant]
     Active Substance: FLUNITRAZEPAM
     Indication: INSOMNIA
     Dosage: AS REQUIRED
     Route: 048
  3. SUREPOST [Concomitant]
     Active Substance: REPAGLINIDE
     Indication: TYPE 2 DIABETES MELLITUS
     Dosage: NUMBER OF SEPARETE DOSAGES UNKNOWN
     Route: 048
     Dates: start: 20161110, end: 20171013
  4. METFORMIN HYDROCHLORIDE. [Concomitant]
     Active Substance: METFORMIN HYDROCHLORIDE
     Indication: TYPE 2 DIABETES MELLITUS
     Dosage: NUMBER OF SEPARETE DOSAGES UNKNOWN
     Route: 048
     Dates: start: 20160720, end: 20171013
  5. LOXOPROFEN [Concomitant]
     Active Substance: LOXOPROFEN
     Indication: TRIGEMINAL NEURALGIA
     Dosage: AS REQUIRED
     Route: 048
  6. BYDUREON [Suspect]
     Active Substance: EXENATIDE
     Indication: TYPE 2 DIABETES MELLITUS
     Route: 058
     Dates: start: 20160109, end: 20171020
  7. PLAVIX [Concomitant]
     Active Substance: CLOPIDOGREL BISULFATE
     Indication: CEREBRAL INFARCTION
     Dosage: NUMBER OF SEPARETE DOSAGES UNKNOWN
     Route: 048
  8. ATARAX-P [Concomitant]
     Active Substance: HYDROXYZINE HYDROCHLORIDE
     Indication: INSOMNIA
     Dosage: AS REQUIRED
     Route: 048
  9. REFLEX [Concomitant]
     Active Substance: MIRTAZAPINE
     Indication: DEPRESSION
     Dosage: NUMBER OF SEPARETE DOSAGES UNKNOWN
     Route: 048
  10. LANTUS XR [Concomitant]
     Active Substance: INSULIN GLARGINE
     Indication: TYPE 2 DIABETES MELLITUS
     Dosage: NUMBER OF SEPARETE DOSAGES UNKNOWN
     Route: 065
     Dates: start: 20171013
  11. AMARYL [Concomitant]
     Active Substance: GLIMEPIRIDE
     Indication: TYPE 2 DIABETES MELLITUS
     Dosage: NUMBER OF SEPARETE DOSAGES UNKNOWN
     Route: 048
     Dates: end: 20160914
  12. TEPRENONE [Concomitant]
     Active Substance: TEPRENONE
     Indication: CHRONIC GASTRITIS
     Dosage: NUMBER OF SEPARETE DOSAGES UNKNOWN
     Route: 048
  13. LENDORMIN D [Concomitant]
     Active Substance: BROTIZOLAM
     Indication: INSOMNIA
     Dosage: AS REQUIRED
     Route: 048
  14. ARICEPT [Concomitant]
     Active Substance: DONEPEZIL HYDROCHLORIDE
     Indication: DEMENTIA
     Dosage: NUMBER OF SEPARETE DOSAGES UNKNOWN
     Route: 048
  15. MEMARY OD [Concomitant]
     Active Substance: MEMANTINE HYDROCHLORIDE
     Indication: DEMENTIA
     Dosage: NUMBER OF SEPARETE DOSAGES UNKNOWN
     Route: 048
  16. ETIZOLAM [Concomitant]
     Active Substance: ETIZOLAM
     Dosage: AS REQUIRED
     Route: 048
  17. AMARYL [Concomitant]
     Active Substance: GLIMEPIRIDE
     Indication: TYPE 2 DIABETES MELLITUS
     Dosage: NUMBER OF SEPARETE DOSAGES UNKNOWN
     Route: 048
     Dates: start: 20160915, end: 20161109

REACTIONS (3)
  - Cardiac failure [Recovered/Resolved]
  - Hypoglycaemia [Recovered/Resolved]
  - Glaucoma [Not Recovered/Not Resolved]

NARRATIVE: CASE EVENT DATE: 20160511
